FAERS Safety Report 16568954 (Version 2)
Quarter: 2019Q3

REPORT INFORMATION
  Report Type: Spontaneous
  Country: JP (occurrence: JP)
  Receive Date: 20190713
  Receipt Date: 20190814
  Transmission Date: 20191004
  Serious: Yes (Other)
  Sender: FDA-Public Use
  Company Number: JP-BRISTOL-MYERS SQUIBB COMPANY-BMS-2019-067416

PATIENT
  Age: 8 Decade
  Sex: Male

DRUGS (8)
  1. ASPIRIN. [Suspect]
     Active Substance: ASPIRIN
     Indication: DYSLIPIDAEMIA
     Route: 065
  2. ASPIRIN. [Suspect]
     Active Substance: ASPIRIN
     Indication: MYOCARDIAL INFARCTION
     Route: 065
  3. ELIQUIS [Suspect]
     Active Substance: APIXABAN
     Indication: DYSLIPIDAEMIA
     Route: 065
  4. ELIQUIS [Suspect]
     Active Substance: APIXABAN
     Indication: HYPERTENSION
     Route: 065
  5. ELIQUIS [Suspect]
     Active Substance: APIXABAN
     Indication: MYOCARDIAL INFARCTION
     Route: 065
  6. ASPIRIN. [Suspect]
     Active Substance: ASPIRIN
     Indication: HYPERTENSION
     Route: 065
  7. ELIQUIS [Suspect]
     Active Substance: APIXABAN
     Indication: DIABETES MELLITUS
     Dosage: UNK
     Route: 065
  8. ASPIRIN. [Suspect]
     Active Substance: ASPIRIN
     Indication: DIABETES MELLITUS
     Route: 065

REACTIONS (1)
  - Immune thrombocytopenic purpura [Unknown]
